FAERS Safety Report 5713809-9 (Version None)
Quarter: 2008Q2

REPORT INFORMATION
  Report Type: 
  Country: None (occurrence: None)
  Receive Date: 20080423
  Receipt Date: 20080411
  Transmission Date: 20081010
  Serious: Yes (Other)
  Sender: FDA-Public Use
  Company Number: US-RANBAXY-2008RR-14435

PATIENT

DRUGS (4)
  1. TOPIRAMATE [Suspect]
     Indication: PSYCHOTIC DISORDER
  2. CITALOPRAM HYDROBROMIDE [Suspect]
     Indication: PSYCHOTIC DISORDER
  3. RISPERIDONE 4MG FILM-COATED TABLETS [Suspect]
  4. ARIPIPRAZOLE [Concomitant]

REACTIONS (2)
  - HYPERPROLACTINAEMIA [None]
  - VISUAL DISTURBANCE [None]
